FAERS Safety Report 22620018 (Version 1)
Quarter: 2023Q2

REPORT INFORMATION
  Report Type: Spontaneous
  Country: JP (occurrence: JP)
  Receive Date: 20230620
  Receipt Date: 20230620
  Transmission Date: 20230722
  Serious: Yes (Hospitalization)
  Sender: FDA-Public Use
  Company Number: JP-ORPHANEU-2020003040

PATIENT

DRUGS (2)
  1. SIGNIFOR LAR [Suspect]
     Active Substance: PASIREOTIDE PAMOATE
     Indication: Acromegaly
     Dosage: 40 MILLIGRAM, QM
     Route: 030
     Dates: start: 20200403, end: 20200708
  2. CABERGOLINE [Concomitant]
     Active Substance: CABERGOLINE
     Indication: Acromegaly
     Dosage: UNK

REACTIONS (4)
  - Pancreatic cystadenoma [Unknown]
  - Chronic kidney disease [Unknown]
  - Primary hyperaldosteronism [Unknown]
  - Hyperglycaemia [Recovered/Resolved]

NARRATIVE: CASE EVENT DATE: 20200722
